FAERS Safety Report 5418995-6 (Version None)
Quarter: 2007Q3

REPORT INFORMATION
  Report Type: 
  Country: None (occurrence: None)
  Receive Date: 20070817
  Receipt Date: 20070806
  Transmission Date: 20080115
  Serious: Yes (Other)
  Sender: FDA-Public Use
  Company Number: GR-PFIZER INC-2007066495

PATIENT
  Sex: Female

DRUGS (1)
  1. LYRICA [Suspect]
     Dates: start: 20070701, end: 20070806

REACTIONS (4)
  - DEMENTIA [None]
  - DIZZINESS [None]
  - HEADACHE [None]
  - NAUSEA [None]
